FAERS Safety Report 15188964 (Version 1)
Quarter: 2018Q3

REPORT INFORMATION
  Report Type: Spontaneous
  Country: US (occurrence: US)
  Receive Date: 20180625
  Receipt Date: 20180625
  Transmission Date: 20181010
  Serious: Yes (Life-Threatening, Hospitalization, Disabling)
  Sender: FDA-Public Use
  Company Number: None

PATIENT
  Age: 66 Year
  Sex: Female
  Weight: 64.8 kg

DRUGS (2)
  1. FLOLAN [Suspect]
     Active Substance: EPOPROSTENOL SODIUM
  2. FLOLAN PH 12 STERILE DILUENT [Suspect]
     Active Substance: GLYCINE\MANNITOL\SODIUM CHLORIDE
     Indication: PULMONARY HYPERTENSION
     Dates: start: 20170815, end: 20180415

REACTIONS (4)
  - Product substitution issue [None]
  - Localised oedema [None]
  - Oedema peripheral [None]
  - Pulmonary oedema [None]

NARRATIVE: CASE EVENT DATE: 20170815
